FAERS Safety Report 4800132-X (Version None)
Quarter: 2005Q4

REPORT INFORMATION
  Report Type: 
  Country: None (occurrence: None)
  Receive Date: 20051017
  Receipt Date: 20051010
  Transmission Date: 20060501
  Serious: Yes (Other)
  Sender: FDA-Public Use
  Company Number: PHFR2005GB03144

PATIENT
  Sex: Male
  Weight: 2 kg

DRUGS (6)
  1. AMOXICILLIN [Suspect]
  2. SENNA [Suspect]
  3. LACTULOSE [Suspect]
  4. CYCLIZINE [Suspect]
  5. GAVISCON [Suspect]
  6. ANAFRANIL [Suspect]

REACTIONS (3)
  - DRUG EXPOSURE DURING PREGNANCY [None]
  - GASTROOESOPHAGEAL REFLUX DISEASE [None]
  - PREMATURE BABY [None]
